FAERS Safety Report 7028260-1 (Version None)
Quarter: 2010Q4

REPORT INFORMATION
  Report Type: 
  Country: None (occurrence: None)
  Receive Date: 20101005
  Receipt Date: 20101001
  Transmission Date: 20110411
  Serious: Yes (Other)
  Sender: FDA-Public Use
  Company Number: TR-ROCHE-424055

PATIENT
  Age: 16 Year
  Sex: Male

DRUGS (2)
  1. ISOTRETINOIN [Suspect]
     Dosage: DOSE STEADILY INCREASED TO 70 MG/DAY.
     Route: 065
  2. ISOTRETINOIN [Suspect]
     Route: 065

REACTIONS (1)
  - ATRIAL TACHYCARDIA [None]
